FAERS Safety Report 11071537 (Version 1)
Quarter: 2015Q2

REPORT INFORMATION
  Report Type: Spontaneous
  Country: BR (occurrence: BR)
  Receive Date: 20150428
  Receipt Date: 20150428
  Transmission Date: 20150821
  Serious: Yes (Hospitalization, Other)
  Sender: FDA-Public Use
  Company Number: BR-ELI_LILLY_AND_COMPANY-BR201504005637

PATIENT
  Age: 9 Year
  Sex: Female
  Weight: 31 kg

DRUGS (7)
  1. HUMULIN N [Suspect]
     Active Substance: INSULIN HUMAN
     Indication: TYPE 1 DIABETES MELLITUS
     Dosage: 11 IU, EACH MORNING
     Route: 058
     Dates: start: 201502
  2. HUMULIN R [Suspect]
     Active Substance: INSULIN HUMAN
     Dosage: 3 IU, OTHER
     Route: 058
  3. HUMULIN R [Suspect]
     Active Substance: INSULIN HUMAN
     Indication: TYPE 1 DIABETES MELLITUS
     Dosage: 3 IU, OTHER
     Route: 058
     Dates: start: 201502
  4. HUMULIN N [Suspect]
     Active Substance: INSULIN HUMAN
     Dosage: 12 IU, EACH MORNING
     Route: 058
  5. HUMULIN R [Suspect]
     Active Substance: INSULIN HUMAN
     Dosage: 1 IU, OTHER
     Route: 058
  6. HUMULIN N [Suspect]
     Active Substance: INSULIN HUMAN
     Dosage: 3 IU, EACH EVENING
     Route: 058
     Dates: start: 201502
  7. HUMULIN N [Suspect]
     Active Substance: INSULIN HUMAN
     Dosage: 4 IU, EACH EVENING
     Route: 058

REACTIONS (4)
  - Feeling abnormal [Unknown]
  - Thirst [Unknown]
  - Blood glucose increased [Recovered/Resolved]
  - Weight decreased [Unknown]

NARRATIVE: CASE EVENT DATE: 201502
